FAERS Safety Report 9230840 (Version 1)
Quarter: 2013Q2

REPORT INFORMATION
  Report Type: Report from Study
  Country: IT (occurrence: IT)
  Receive Date: 20130415
  Receipt Date: 20130415
  Transmission Date: 20140414
  Serious: Yes (Hospitalization)
  Sender: FDA-Public Use
  Company Number: PHHO2011IT01278

PATIENT
  Age: 79 Year
  Sex: Male
  Weight: 84 kg

DRUGS (8)
  1. BLINDED ALISKIREN [Suspect]
     Indication: CARDIAC FAILURE
     Dosage: CODE NOT BROKEN
     Route: 048
     Dates: start: 20110111, end: 20130217
  2. BLINDED ENALAPRIL [Suspect]
     Indication: CARDIAC FAILURE
     Dosage: CODE NOT BROKEN
     Route: 048
     Dates: start: 20110111, end: 20130217
  3. BLINDED NO TREATMENT RECEIVED [Suspect]
     Indication: CARDIAC FAILURE
     Dosage: CODE NOT BROKEN
     Route: 048
     Dates: start: 20110111, end: 20130217
  4. METOPROLOL [Concomitant]
     Dosage: 100 MG, 1/2 DIE
     Route: 048
     Dates: end: 20130217
  5. FUROSEMIDE [Concomitant]
     Dosage: 25 MG, BID
     Route: 048
     Dates: start: 20130102, end: 20130217
  6. ROSUVASTATIN [Concomitant]
  7. ASA [Concomitant]
     Dosage: 100 MG, DIE
     Dates: start: 20130102
  8. NITRATES [Concomitant]
     Indication: CARDIAC FAILURE CONGESTIVE
     Dosage: 10 MG, DIE
     Dates: start: 20130102

REACTIONS (4)
  - Chronic obstructive pulmonary disease [Recovered/Resolved]
  - Cardiac failure acute [Recovered/Resolved]
  - Dyspnoea [Recovering/Resolving]
  - Concomitant disease progression [Recovered/Resolved]
